FAERS Safety Report 8123406-6 (Version None)
Quarter: 2012Q1

REPORT INFORMATION
  Report Type: 
  Country: None (occurrence: None)
  Receive Date: 20120208
  Receipt Date: 20120125
  Transmission Date: 20120608
  Serious: Yes (Death, Hospitalization)
  Sender: FDA-Public Use
  Company Number: US-MUTUAL PHARMACEUTICAL COMPANY, INC.-CLHC20120010

PATIENT
  Age: 52 Year
  Sex: Male
  Weight: 127.12 kg

DRUGS (4)
  1. COLCHICINE [Suspect]
     Indication: PRODUCT USED FOR UNKNOWN INDICATION
     Route: 048
     Dates: end: 20100101
  2. ACETAMINOPHEN [Concomitant]
     Indication: PRODUCT USED FOR UNKNOWN INDICATION
     Route: 065
     Dates: end: 20100101
  3. SALICYLATE [Concomitant]
     Indication: PRODUCT USED FOR UNKNOWN INDICATION
     Route: 065
     Dates: end: 20100101
  4. UNKNOWN MEDICATIONS [Concomitant]
     Indication: PRODUCT USED FOR UNKNOWN INDICATION
     Route: 065
     Dates: end: 20100101

REACTIONS (30)
  - OXYGEN SATURATION DECREASED [None]
  - RESPIRATORY RATE INCREASED [None]
  - TROPONIN INCREASED [None]
  - BLOOD PRESSURE DECREASED [None]
  - CARDIAC ARREST [None]
  - ASPARTATE AMINOTRANSFERASE INCREASED [None]
  - CHEST X-RAY ABNORMAL [None]
  - PO2 DECREASED [None]
  - DRUG ADMINISTRATION ERROR [None]
  - ACCIDENTAL OVERDOSE [None]
  - CYST [None]
  - DIARRHOEA [None]
  - OEDEMA PERIPHERAL [None]
  - WHITE BLOOD CELL COUNT DECREASED [None]
  - DYSPNOEA [None]
  - BLOOD BICARBONATE DECREASED [None]
  - PLEURAL EFFUSION [None]
  - ERYTHEMA [None]
  - PLATELET COUNT DECREASED [None]
  - BLOOD CALCIUM DECREASED [None]
  - BASE EXCESS DECREASED [None]
  - NAUSEA [None]
  - BLOOD LACTATE DEHYDROGENASE INCREASED [None]
  - HEART RATE INCREASED [None]
  - BODY TEMPERATURE INCREASED [None]
  - PCO2 DECREASED [None]
  - PULMONARY OEDEMA [None]
  - LUNG INFILTRATION [None]
  - VOMITING [None]
  - BLOOD CREATINE PHOSPHOKINASE INCREASED [None]
